FAERS Safety Report 5608373-9 (Version None)
Quarter: 2008Q1

REPORT INFORMATION
  Report Type: 
  Country: None (occurrence: None)
  Receive Date: 20080130
  Receipt Date: 20080118
  Transmission Date: 20080703
  Serious: Yes (Disabling)
  Sender: FDA-Public Use
  Company Number: IT-PFIZER INC-2008005838

PATIENT
  Sex: Female

DRUGS (5)
  1. MEDROL [Suspect]
     Indication: POLYMYALGIA RHEUMATICA
     Dosage: DAILY DOSE:16MG
     Route: 048
     Dates: start: 20070801, end: 20080110
  2. EUTIROX [Concomitant]
  3. CARDIRENE [Concomitant]
  4. LANSOX [Concomitant]
  5. ACESISTEM [Concomitant]

REACTIONS (2)
  - ALOPECIA [None]
  - TREMOR [None]
